FAERS Safety Report 5478130-5 (Version None)
Quarter: 2007Q4

REPORT INFORMATION
  Report Type: 
  Country: None (occurrence: None)
  Receive Date: 20071005
  Receipt Date: 20061103
  Transmission Date: 20080405
  Serious: No
  Sender: FDA-Public Use
  Company Number: US-BRISTOL-MYERS SQUIBB COMPANY-13565551

PATIENT
  Sex: Female
  Weight: 68 kg

DRUGS (13)
  1. AVAPRO [Suspect]
     Indication: BLOOD PRESSURE
  2. TENORMIN [Concomitant]
     Indication: HYPERTENSION
  3. HYDROXYUREA [Concomitant]
  4. LEVOXYL [Concomitant]
  5. ASPIRIN [Concomitant]
  6. TOPAMAX [Concomitant]
  7. CELXA [Concomitant]
  8. PROTONIX [Concomitant]
  9. CALCIUM [Concomitant]
  10. TYLENOL (CAPLET) [Concomitant]
  11. AMERGE [Concomitant]
  12. AMBIEN [Concomitant]
  13. MULTI-VITAMIN [Concomitant]

REACTIONS (3)
  - BLOOD PRESSURE INCREASED [None]
  - OSTEOARTHRITIS [None]
  - PALPITATIONS [None]
